FAERS Safety Report 10098073 (Version 1)
Quarter: 2014Q2

REPORT INFORMATION
  Report Type: Spontaneous
  Country: GB (occurrence: GB)
  Receive Date: 20140423
  Receipt Date: 20140423
  Transmission Date: 20141212
  Serious: Yes (Disabling)
  Sender: FDA-Public Use
  Company Number: GB-ACCORD-023180

PATIENT
  Age: 73 Year
  Sex: Female
  Weight: 71.1 kg

DRUGS (10)
  1. LISINOPRIL [Suspect]
     Indication: PRODUCT USED FOR UNKNOWN INDICATION
     Dates: start: 20131125
  2. CERUMOL [Concomitant]
     Dates: start: 20140109, end: 20140112
  3. CO-CODAMOL [Concomitant]
     Dates: start: 20140312
  4. ERYTHROMYCIN [Concomitant]
     Dates: start: 20140318, end: 20140325
  5. GAVISCON ADVANCE [Concomitant]
     Dates: start: 20140212, end: 20140213
  6. DICLOFENAC [Concomitant]
     Dates: start: 20140106, end: 20140312
  7. SIMVASTATIN [Concomitant]
     Dates: start: 20131125, end: 20140319
  8. MOMETASONE [Concomitant]
     Dates: start: 20140106, end: 20140107
  9. BUDESONIDE [Concomitant]
     Dates: start: 20140212
  10. HYPROMELLOSE/HYPROMELLOSE PHTHALATE [Concomitant]
     Dates: start: 20140128, end: 20140225

REACTIONS (2)
  - Lip swelling [Unknown]
  - Dermatitis allergic [Recovered/Resolved]
